FAERS Safety Report 4341480-X (Version None)
Quarter: 2004Q2

REPORT INFORMATION
  Report Type: 
  Country: None (occurrence: None)
  Receive Date: 20040415
  Receipt Date: 20040408
  Transmission Date: 20050107
  Serious: Yes (Hospitalization)
  Sender: FDA-Public Use
  Company Number: TPA2004A00163

PATIENT
  Age: 70 Year
  Sex: Female
  Weight: 62.5964 kg

DRUGS (4)
  1. ACTOS [Suspect]
     Dosage: 30 MG, UNKNOWN; PER ORAL
     Route: 048
  2. UNKNOWN INSULIN (INSULIN/N/A/) [Concomitant]
  3. GLUCOTROL XL [Concomitant]
  4. HUMULIN N (INSULIN HUMAN INJECTION, ISOPHANE (35 IU (INTERNATIONAL UNI [Concomitant]

REACTIONS (8)
  - AUTOIMMUNE HEPATITIS [None]
  - BLOOD GLUCOSE INCREASED [None]
  - DIALYSIS [None]
  - ENCEPHALOPATHY [None]
  - MENTAL STATUS CHANGES [None]
  - MULTIPLE MYELOMA [None]
  - RENAL FAILURE CHRONIC [None]
  - SEPSIS [None]
